FAERS Safety Report 17141251 (Version 1)
Quarter: 2019Q4

REPORT INFORMATION
  Report Type: Report from Study
  Country: FR (occurrence: FR)
  Receive Date: 20191211
  Receipt Date: 20191211
  Transmission Date: 20200122
  Serious: Yes (Life-Threatening)
  Sender: FDA-Public Use
  Company Number: FR-PFIZER INC-2019530240

PATIENT
  Age: 75 Year
  Sex: Female
  Weight: 58 kg

DRUGS (8)
  1. PERTUZUMAB. [Suspect]
     Active Substance: PERTUZUMAB
     Indication: BREAST CANCER
     Dosage: 840 MG, EVERY 3 WEEKS (LAST DOSE PRIOR TO SAE 05AUG2013)
     Route: 042
     Dates: start: 20130805, end: 20130805
  2. PARACETAMOL [Concomitant]
     Active Substance: ACETAMINOPHEN
     Indication: PAIN PROPHYLAXIS
     Dosage: UNK
     Route: 065
     Dates: start: 20130731
  3. PREDNISOLONE. [Concomitant]
     Active Substance: PREDNISOLONE
     Indication: PROPHYLAXIS
     Dosage: 20 MG, UNK
     Route: 065
     Dates: start: 20131008
  4. LEVOTHYROX [Concomitant]
     Active Substance: LEVOTHYROXINE
     Indication: HYPOTHYROIDISM
     Dosage: 75 UG, UNK
     Route: 065
     Dates: start: 20131007
  5. TRASTUZUMAB. [Concomitant]
     Active Substance: TRASTUZUMAB
     Indication: BREAST CANCER
     Dosage: 441 MG, EVERY 3 WEEKS (LAST DOSE PRIOR TO SAE 06AUG2013)
     Route: 042
     Dates: start: 20130806, end: 20130806
  6. TARDYFERON [Concomitant]
     Active Substance: FERROUS SULFATE
     Indication: ANAEMIA
     Dosage: 1600 MG, 1X/DAY
     Route: 065
     Dates: start: 20131007
  7. ARANESP [Concomitant]
     Active Substance: DARBEPOETIN ALFA
     Indication: ANAEMIA
     Dosage: 500 UG, EVERY 3 WEEKS
     Route: 065
     Dates: start: 20130916
  8. DOCETAXEL. [Suspect]
     Active Substance: DOCETAXEL
     Indication: BREAST CANCER
     Dosage: 164 MG, EVERY 3 WEEKS (LAST DOSE PRIOR TO FEBRILE NEUTROPENIA: 06AUG2013)
     Route: 042
     Dates: start: 20130806

REACTIONS (1)
  - Febrile neutropenia [Recovered/Resolved]

NARRATIVE: CASE EVENT DATE: 20130817
